FAERS Safety Report 6667433-4 (Version None)
Quarter: 2010Q1

REPORT INFORMATION
  Report Type: 
  Country: None (occurrence: None)
  Receive Date: 20100331
  Receipt Date: 20100316
  Transmission Date: 20100710
  Serious: No
  Sender: FDA-Public Use
  Company Number: 009168

PATIENT
  Age: 87 Year
  Sex: Male

DRUGS (1)
  1. CILOSTAZOL [Suspect]
     Indication: ISCHAEMIA
     Dosage: 200 MG, DAILY DOSE, ORAL
     Route: 048
     Dates: start: 20091202, end: 20091218

REACTIONS (2)
  - DIABETES MELLITUS INADEQUATE CONTROL [None]
  - INSULIN-REQUIRING TYPE 2 DIABETES MELLITUS [None]
